FAERS Safety Report 8793738 (Version 2)
Quarter: 2012Q4

REPORT INFORMATION
  Report Type: Report from Study
  Country: JP (occurrence: JP)
  Receive Date: 20120917
  Receipt Date: 20121213
  Transmission Date: 20130627
  Serious: Yes (Death, Hospitalization, Other)
  Sender: FDA-Public Use
  Company Number: PHHY2011JP76449

PATIENT
  Age: 83 Year
  Sex: Male

DRUGS (9)
  1. AFINITOR [Suspect]
     Indication: METASTATIC RENAL CELL CARCINOMA
     Dosage: 5 mg, daily
     Route: 048
     Dates: start: 20110701, end: 20110714
  2. AFINITOR [Suspect]
     Dosage: 10 mg, QD
     Route: 048
     Dates: start: 20110715, end: 20110815
  3. PERSANTIN-L [Concomitant]
     Route: 048
     Dates: start: 20100225, end: 20110815
  4. GASTER [Concomitant]
     Route: 048
     Dates: start: 20100225, end: 20110815
  5. PROMAC [Concomitant]
     Route: 048
     Dates: start: 20100225
  6. CALCIUM POLYSTYRENE SULFONATE [Concomitant]
     Dates: start: 20090903, end: 20110815
  7. ARTIST [Concomitant]
     Route: 048
     Dates: start: 20100426, end: 20110815
  8. SODIUM BICARBONATE [Concomitant]
     Route: 048
     Dates: start: 20110124, end: 20110815
  9. ADOFEED [Concomitant]
     Route: 048
     Dates: start: 20110630

REACTIONS (10)
  - Interstitial lung disease [Fatal]
  - Respiratory arrest [Fatal]
  - Dyspnoea [Fatal]
  - Renal failure [Recovering/Resolving]
  - Blood creatinine increased [Unknown]
  - Blood urea increased [Unknown]
  - Blood lactate dehydrogenase increased [Unknown]
  - Asthenia [Unknown]
  - Alanine aminotransferase increased [Unknown]
  - General physical health deterioration [Unknown]
